FAERS Safety Report 6389975-1 (Version None)
Quarter: 2009Q4

REPORT INFORMATION
  Report Type: 
  Country: None (occurrence: None)
  Receive Date: 20091006
  Receipt Date: 20090721
  Transmission Date: 20100525
  Serious: No
  Sender: FDA-Public Use
  Company Number: US-BRISTOL-MYERS SQUIBB COMPANY-14710081

PATIENT
  Age: 74 Year
  Sex: Male
  Weight: 70 kg

DRUGS (2)
  1. IRBESARTAN TABS 75 MG [Suspect]
     Indication: HYPERTENSION
     Route: 048
  2. ZEMPLAR [Suspect]
     Indication: RENAL DISORDER
     Dosage: FORMULATION: ZEMPLAR CAPSULE 1 MCG (1 MICROGRAM, TABLETS).
     Route: 048
     Dates: start: 20090501

REACTIONS (1)
  - SOMNOLENCE [None]
